FAERS Safety Report 7126266-5 (Version None)
Quarter: 2010Q4

REPORT INFORMATION
  Report Type: 
  Country: None (occurrence: None)
  Receive Date: 20101129
  Receipt Date: 20101027
  Transmission Date: 20110411
  Serious: Yes (Hospitalization)
  Sender: FDA-Public Use
  Company Number: NL-PFIZER INC-2010158148

PATIENT
  Age: 60 Year
  Sex: Male

DRUGS (3)
  1. EPIRUBICIN HCL [Suspect]
     Indication: OESOPHAGEAL ADENOCARCINOMA
     Dosage: UNK
  2. CISPLATIN [Suspect]
     Indication: OESOPHAGEAL ADENOCARCINOMA
  3. FLUOROURACIL [Suspect]
     Indication: OESOPHAGEAL ADENOCARCINOMA

REACTIONS (3)
  - BACTERIAL INFECTION [None]
  - OESOPHAGEAL PERFORATION [None]
  - SEPTIC SHOCK [None]
